FAERS Safety Report 9995966 (Version 1)
Quarter: 2014Q1

REPORT INFORMATION
  Report Type: Spontaneous
  Country: US (occurrence: None)
  Receive Date: 20140310
  Receipt Date: 20140310
  Transmission Date: 20141002
  Serious: No
  Sender: FDA-Public Use
  Company Number: None

PATIENT
  Age: 47 Year
  Sex: Female
  Weight: 61.24 kg

DRUGS (1)
  1. DULOXETINE [Suspect]
     Indication: ARTHRALGIA
     Dosage: 1/DAY ONCE DAILY TAKEN BY MOUTH
     Route: 048

REACTIONS (3)
  - Headache [None]
  - Drug ineffective [None]
  - Product substitution issue [None]
